FAERS Safety Report 9641211 (Version 2)
Quarter: 2013Q4

REPORT INFORMATION
  Report Type: Report from Study
  Country: US (occurrence: US)
  Receive Date: 20131023
  Receipt Date: 20131029
  Transmission Date: 20140711
  Serious: Yes (Disabling, Other)
  Sender: FDA-Public Use
  Company Number: US-BAXTER-2013BAX041316

PATIENT
  Sex: Male
  Weight: 88.41 kg

DRUGS (5)
  1. ARALAST NP [Suspect]
     Indication: ALPHA-1 ANTI-TRYPSIN DEFICIENCY
     Route: 042
  2. CYMBALTA [Concomitant]
     Indication: NEUROPATHY PERIPHERAL
     Route: 065
  3. GABAPENTIN [Concomitant]
     Indication: NEUROPATHY PERIPHERAL
     Route: 065
  4. GLUCOPHAGE [Concomitant]
     Indication: DIABETES MELLITUS
     Route: 065
  5. TRILIPIX [Concomitant]
     Indication: HYPERCHOLESTEROLAEMIA
     Route: 065

REACTIONS (3)
  - Diabetes mellitus [Unknown]
  - Peroneal muscular atrophy [Unknown]
  - Weight decreased [Unknown]
